FAERS Safety Report 5806834-0 (Version None)
Quarter: 2008Q3

REPORT INFORMATION
  Report Type: 
  Country: None (occurrence: None)
  Receive Date: 20080711
  Receipt Date: 20080630
  Transmission Date: 20090109
  Serious: Yes (Hospitalization)
  Sender: FDA-Public Use
  Company Number: FR-SOLVAY-00208002933

PATIENT
  Age: 81 Year
  Sex: Male

DRUGS (6)
  1. COVERSYL [Suspect]
     Indication: HYPERTENSION
     Dosage: DAILY DOSE: 4 MILLIGRAM(S)
     Route: 048
  2. DEPAKENE [Suspect]
     Indication: EPILEPSY
     Dosage: DAILY DOSE: 1000 MILLIGRAM(S)
     Route: 048
     Dates: start: 20080301, end: 20080403
  3. PROSCAR [Suspect]
     Indication: PROSTATIC ADENOMA
     Dosage: DAILY DOSE: 5 MILLIGRAM(S)
     Route: 065
  4. SKELID [Suspect]
     Indication: DRUG USE FOR UNKNOWN INDICATION
     Dosage: DAILY DOSE: 400 MILLIGRAM(S)
     Route: 065
  5. KARDEGIC [Suspect]
     Indication: PROPHYLAXIS
     Dosage: DAILY DOSE: 75 MILLIGRAM(S)
     Route: 065
  6. TAHOR [Suspect]
     Indication: HYPERCHOLESTEROLAEMIA
     Dosage: DAILY DOSE: 80 MILLIGRAM(S)
     Route: 065

REACTIONS (4)
  - EPILEPSY [None]
  - FALL [None]
  - ILL-DEFINED DISORDER [None]
  - WALKING DISABILITY [None]
